FAERS Safety Report 8949995 (Version 2)
Quarter: 2012Q4

REPORT INFORMATION
  Report Type: 
  Country: US (occurrence: US)
  Receive Date: 20121205
  Receipt Date: 20121210
  Transmission Date: 20130627
  Serious: No
  Sender: FDA-Public Use
  Company Number: US-TEVA-373868USA

PATIENT
  Sex: Female
  Weight: 46.76 kg

DRUGS (10)
  1. AZILECT [Suspect]
     Indication: PARKINSON^S DISEASE
     Dosage: 1 Milligram Daily;
     Route: 048
  2. SINEMET [Concomitant]
     Indication: PARKINSON^S DISEASE
     Route: 048
  3. HYZAAR [Concomitant]
     Indication: HYPERTENSION
     Dosage: 12.5/100 mg
     Route: 048
     Dates: start: 201206
  4. TOPROL [Concomitant]
     Indication: HYPERTENSION
     Dosage: 100 Milligram Daily; 200 mg
     Route: 048
  5. AMLODIPINE [Concomitant]
     Indication: HYPERTENSION
     Dosage: 5 Milligram Daily;
     Route: 048
     Dates: start: 201211
  6. CARBIDOPA/LEVODOPA [Concomitant]
     Indication: PARKINSON^S DISEASE
     Dosage: 25/100 mg
     Route: 048
     Dates: start: 2011
  7. AMANTIDINE [Concomitant]
     Indication: PARKINSON^S DISEASE
     Dosage: 200 Milligram Daily; 200 mg
     Route: 048
     Dates: start: 201211
  8. WARFARIN [Concomitant]
     Indication: ATRIAL FIBRILLATION
     Dosage: 5 Microgram Daily; 7.5 mg/10 mg alternating
     Route: 048
  9. MYSOLINE [Concomitant]
     Indication: TREMOR
     Dosage: 100 Microgram Daily; 100 mg
     Route: 048
     Dates: start: 2009
  10. DIGOXIN [Concomitant]
     Indication: ATRIAL FIBRILLATION
     Dosage: .25 Milligram Daily;
     Route: 048

REACTIONS (1)
  - Blood pressure increased [Not Recovered/Not Resolved]
